FAERS Safety Report 11329722 (Version 1)
Quarter: 2015Q3

REPORT INFORMATION
  Report Type: Spontaneous
  Country: IT (occurrence: IT)
  Receive Date: 20150803
  Receipt Date: 20150803
  Transmission Date: 20151125
  Serious: Yes (Other)
  Sender: FDA-Public Use
  Company Number: IT-UCBSA-2015023860

PATIENT
  Age: 77 Year
  Sex: Male

DRUGS (2)
  1. LAMICTAL [Suspect]
     Active Substance: LAMOTRIGINE
     Indication: EPILEPSY
     Dosage: 100MG DAILY
     Route: 048
     Dates: start: 20150613, end: 20150616
  2. VIMPAT [Suspect]
     Active Substance: LACOSAMIDE
     Indication: EPILEPSY
     Dosage: 100MG DAILY
     Route: 048
     Dates: start: 20150613, end: 20150616

REACTIONS (3)
  - No therapeutic response [Unknown]
  - Epilepsy [Recovering/Resolving]
  - Generalised tonic-clonic seizure [Recovering/Resolving]

NARRATIVE: CASE EVENT DATE: 20150616
